FAERS Safety Report 21550766 (Version 1)
Quarter: 2022Q4

REPORT INFORMATION
  Report Type: Spontaneous
  Country: US (occurrence: US)
  Receive Date: 20221103
  Receipt Date: 20221103
  Transmission Date: 20230112
  Serious: No
  Sender: FDA-Public Use
  Company Number: US-PERRIGO-22US007776

PATIENT
  Age: 19 Year
  Sex: Female
  Weight: 63.492 kg

DRUGS (1)
  1. FAMOTIDINE [Suspect]
     Active Substance: FAMOTIDINE
     Indication: Accidental exposure to product
     Dosage: 60 MG, SINGLE
     Route: 048
     Dates: start: 20220527, end: 20220527

REACTIONS (2)
  - Incorrect dose administered [Unknown]
  - Wrong product administered [Unknown]

NARRATIVE: CASE EVENT DATE: 20220527
